FAERS Safety Report 7711605-4 (Version None)
Quarter: 2011Q3

REPORT INFORMATION
  Report Type: 
  Country: None (occurrence: None)
  Receive Date: 20110826
  Receipt Date: 20110719
  Transmission Date: 20111222
  Serious: No
  Sender: FDA-Public Use
  Company Number: US-BRISTOL-MYERS SQUIBB COMPANY-15764772

PATIENT
  Age: 52 Year
  Sex: Male
  Weight: 99 kg

DRUGS (4)
  1. ONGLYZA [Suspect]
     Dosage: USED FOR 45 DAYS FROM BMS SAMPLES.
  2. ACTOS [Concomitant]
  3. PHENYLEPHRINE HCL [Concomitant]
  4. GLYBURIDE AND METFORMIN HYDROCHLORIDE [Concomitant]

REACTIONS (5)
  - OEDEMA PERIPHERAL [None]
  - DYSPNOEA [None]
  - NAIL INFECTION [None]
  - EPISTAXIS [None]
  - UPPER RESPIRATORY TRACT INFECTION [None]
